FAERS Safety Report 4674072-3 (Version None)
Quarter: 2005Q2

REPORT INFORMATION
  Report Type: 
  Country: None (occurrence: None)
  Receive Date: 20050525
  Receipt Date: 20050512
  Transmission Date: 20051028
  Serious: Yes (Other)
  Sender: FDA-Public Use
  Company Number: 200512008BCC

PATIENT
  Sex: Female

DRUGS (2)
  1. ALEVE [Suspect]
     Indication: ANALGESIC EFFECT
     Dosage: ORAL
     Route: 048
     Dates: start: 20040101
  2. COUMADIN [Concomitant]

REACTIONS (1)
  - ADVERSE EVENT [None]
